FAERS Safety Report 7535962-7 (Version None)
Quarter: 2011Q2

REPORT INFORMATION
  Report Type: 
  Country: None (occurrence: None)
  Receive Date: 20110607
  Receipt Date: 20110607
  Transmission Date: 20111010
  Serious: No
  Sender: FDA-Public Use
  Company Number: None

PATIENT
  Age: 63 Year
  Sex: Female
  Weight: 81.6475 kg

DRUGS (1)
  1. METHYLPREDNISOLONE [Suspect]
     Indication: SINUSITIS
     Dosage: 4 MG 6 DAILY 5,4,3,2,1,
     Dates: start: 20110428, end: 20110504

REACTIONS (5)
  - MUSCULOSKELETAL PAIN [None]
  - MUSCLE DISORDER [None]
  - MUSCULAR WEAKNESS [None]
  - PAIN [None]
  - ASTHMA [None]
